FAERS Safety Report 5091577-4 (Version None)
Quarter: 2006Q3

REPORT INFORMATION
  Report Type: 
  Country: None (occurrence: None)
  Receive Date: 20060829
  Receipt Date: 20060824
  Transmission Date: 20061208
  Serious: Yes (Other)
  Sender: FDA-Public Use
  Company Number: US-JNJFOC-20060805619

PATIENT
  Sex: Male
  Weight: 86.18 kg

DRUGS (10)
  1. TYLENOL (CAPLET) [Suspect]
     Route: 048
  2. TYLENOL (CAPLET) [Suspect]
     Indication: BACK PAIN
     Route: 048
  3. HUMALOG [Concomitant]
     Indication: DIABETES MELLITUS INSULIN-DEPENDENT
  4. UNSPECIFIED MEDICATION [Concomitant]
     Dosage: 5 MG DAILY, 7 MG ON MONDAYS
  5. DIGITEC [Concomitant]
     Indication: CARDIAC DISORDER
     Dosage: EVERY OTHER DAY
  6. PLAVIX [Concomitant]
     Dosage: IN THE AM
  7. COREG [Concomitant]
     Dosage: 12.5MG QAM AND 25 MG QHS
  8. DIOVAN [Concomitant]
  9. LIPITOR [Concomitant]
  10. NEXIUM [Concomitant]

REACTIONS (2)
  - HYPOGLYCAEMIA [None]
  - LOSS OF CONSCIOUSNESS [None]
